FAERS Safety Report 4294304-3 (Version None)
Quarter: 2004Q1

REPORT INFORMATION
  Report Type: 
  Country: None (occurrence: None)
  Receive Date: 20040211
  Receipt Date: 20031119
  Transmission Date: 20041129
  Serious: Yes (Hospitalization)
  Sender: FDA-Public Use
  Company Number: A0440271A

PATIENT
  Age: 52 Year
  Sex: Female

DRUGS (1)
  1. MELPHALAN INJECTION (MELPHALAN) [Suspect]
     Indication: MULTIPLE MYELOMA
     Dosage: 200 MG/M2, INTRAVENOUS
     Route: 042
     Dates: start: 20021209, end: 20021209

REACTIONS (2)
  - FEBRILE NEUTROPENIA [None]
  - STEM CELL TRANSPLANT [None]
